FAERS Safety Report 6531178-1 (Version None)
Quarter: 2010Q1

REPORT INFORMATION
  Report Type: 
  Country: None (occurrence: None)
  Receive Date: 20100108
  Receipt Date: 20100104
  Transmission Date: 20100710
  Serious: Yes (Other)
  Sender: FDA-Public Use
  Company Number: US-ROCHE-677551

PATIENT
  Sex: Female

DRUGS (3)
  1. TORADOL [Suspect]
     Indication: DRUG USE FOR UNKNOWN INDICATION
     Route: 042
     Dates: start: 20030101
  2. NIPRIDE [Suspect]
     Indication: INDUCTION OF ANAESTHESIA
     Route: 042
     Dates: start: 20030101
  3. CONTRAST DYE [Concomitant]
     Dates: start: 20030101

REACTIONS (2)
  - BRAIN INJURY [None]
  - HYPOTHALAMO-PITUITARY DISORDER [None]
